FAERS Safety Report 15764954 (Version 1)
Quarter: 2018Q4

REPORT INFORMATION
  Report Type: Report from Study
  Country: CA (occurrence: CA)
  Receive Date: 20181227
  Receipt Date: 20181227
  Transmission Date: 20190205
  Serious: Yes (Other)
  Sender: FDA-Public Use
  Company Number: CA-SA-2018SA339528

PATIENT
  Age: 49 Year
  Sex: Female

DRUGS (26)
  1. DIPHENHYDRAMINE. [Concomitant]
     Active Substance: DIPHENHYDRAMINE
  2. PREGABALIN. [Concomitant]
     Active Substance: PREGABALIN
     Dosage: 1 DF, BID
  3. RANITIDINE HYDROCHLORIDE. [Suspect]
     Active Substance: RANITIDINE HYDROCHLORIDE
     Dosage: UNK
  4. BENADRYL [Concomitant]
     Active Substance: DIPHENHYDRAMINE HYDROCHLORIDE
     Dosage: UNK UNK, BID
  5. BISACODYL. [Concomitant]
     Active Substance: BISACODYL
  6. DEXAMETHASONE. [Concomitant]
     Active Substance: DEXAMETHASONE
  7. HYDROXYZINE EMBONATE [Concomitant]
     Active Substance: HYDROXYZINE PAMOATE
     Dosage: UNK, QID
     Route: 048
  8. KETOTIFEN FUMARATE. [Concomitant]
     Active Substance: KETOTIFEN FUMARATE
  9. LORAZEPAM. [Concomitant]
     Active Substance: LORAZEPAM
  10. PANTOPRAZOLE [Suspect]
     Active Substance: PANTOPRAZOLE
     Indication: CHRONIC SPONTANEOUS URTICARIA
     Dosage: 1 MG, BID
     Route: 048
  11. EPIPEN [Concomitant]
     Active Substance: EPINEPHRINE
  12. MIRTAZAPINE. [Concomitant]
     Active Substance: MIRTAZAPINE
  13. REACTINE [CETIRIZINE HYDROCHLORIDE] [Concomitant]
     Active Substance: CETIRIZINE HYDROCHLORIDE
     Dosage: 1 DF, BID
  14. URSODIOL. [Concomitant]
     Active Substance: URSODIOL
  15. FENTANYL. [Concomitant]
     Active Substance: FENTANYL
  16. TEVA HYDROXYZINE [Concomitant]
  17. VITAMIN D [Concomitant]
     Active Substance: CHOLECALCIFEROL
     Indication: ANAEMIA
  18. CIPRO [Concomitant]
     Active Substance: CIPROFLOXACIN HYDROCHLORIDE
     Indication: URINARY RETENTION
  19. DOCUSATE SODIUM. [Concomitant]
     Active Substance: DOCUSATE SODIUM
  20. NALCROM [Concomitant]
     Active Substance: CROMOLYN SODIUM
     Dosage: UNK, QID
  21. SINGULAIR [Concomitant]
     Active Substance: MONTELUKAST SODIUM
  22. CLONAZEPAM. [Concomitant]
     Active Substance: CLONAZEPAM
  23. CYMBALTA [Concomitant]
     Active Substance: DULOXETINE HYDROCHLORIDE
  24. OXYCODONE [Concomitant]
     Active Substance: OXYCODONE
  25. SYNTHROID [Concomitant]
     Active Substance: LEVOTHYROXINE SODIUM
  26. GESIC [BUPRENORPHINE HYDROCHLORIDE] [Concomitant]

REACTIONS (12)
  - Burning sensation [Unknown]
  - Vaginal infection [Unknown]
  - Urticaria [Unknown]
  - Bone pain [Unknown]
  - Mobility decreased [Unknown]
  - Urinary retention [Unknown]
  - Pruritus [Unknown]
  - Product use in unapproved indication [Unknown]
  - Anaphylactic shock [Unknown]
  - Feeling cold [Unknown]
  - Multiple allergies [Unknown]
  - Osteitis [Unknown]
